FAERS Safety Report 11190537 (Version 1)
Quarter: 2015Q2

REPORT INFORMATION
  Report Type: Spontaneous
  Country: US (occurrence: US)
  Receive Date: 20150615
  Receipt Date: 20150615
  Transmission Date: 20150821
  Serious: Yes (Death, Other)
  Sender: FDA-Public Use
  Company Number: US-GLAXOSMITHKLINE-US2015GSK082959

PATIENT
  Age: 55 Year
  Sex: Male

DRUGS (1)
  1. VOTRIENT [Suspect]
     Active Substance: PAZOPANIB HYDROCHLORIDE
     Indication: PLASMA CELL MYELOMA
     Dosage: 800 MG, QD
     Route: 048
     Dates: start: 20141024

REACTIONS (1)
  - Death [Fatal]

NARRATIVE: CASE EVENT DATE: 20150528
